FAERS Safety Report 4384832-4 (Version None)
Quarter: 2004Q2

REPORT INFORMATION
  Report Type: 
  Country: None (occurrence: None)
  Receive Date: 20040623
  Receipt Date: 20040615
  Transmission Date: 20050107
  Serious: Yes (Hospitalization)
  Sender: FDA-Public Use
  Company Number: 8231

PATIENT
  Age: 56 Year
  Sex: Female

DRUGS (2)
  1. PAMIDRONATE DISODIUM [Suspect]
     Indication: BREAST CANCER
     Dosage: 90 MG PRN
     Dates: start: 19990727, end: 20040408
  2. LETROZOLE [Concomitant]

REACTIONS (2)
  - IMPAIRED HEALING [None]
  - TOOTH ABSCESS [None]
